FAERS Safety Report 9847386 (Version 2)
Quarter: 2014Q1

REPORT INFORMATION
  Report Type: Spontaneous
  Country: US (occurrence: US)
  Receive Date: 20140127
  Receipt Date: 20140310
  Transmission Date: 20141002
  Serious: Yes (Hospitalization, Other)
  Sender: FDA-Public Use
  Company Number: US-RB-062814-14

PATIENT
  Age: 28 Year
  Sex: Female

DRUGS (5)
  1. SUBOXONE TABLET [Suspect]
     Indication: DRUG DEPENDENCE
     Route: 060
     Dates: end: 200908
  2. SUBUTEX [Suspect]
     Indication: DRUG DEPENDENCE
     Route: 060
     Dates: start: 200908, end: 201004
  3. PAXIL [Concomitant]
     Indication: BIPOLAR II DISORDER
     Route: 065
  4. MUSCLE RELAXER [Concomitant]
     Indication: LIMB DISCOMFORT
     Dosage: UNKNOWN DOSING DETAILS
     Route: 065
  5. PRENATAL VITAMINS [Concomitant]
     Indication: PRENATAL CARE
     Dosage: UNKNOWN DOSING DETAILS
     Route: 065
     Dates: start: 200908, end: 201004

REACTIONS (9)
  - Maternal exposure during pregnancy [Recovered/Resolved]
  - Gestational diabetes [Recovered/Resolved]
  - Nausea [Unknown]
  - Decreased appetite [Unknown]
  - Fluid intake reduced [Unknown]
  - Drug withdrawal syndrome [Unknown]
  - Premature rupture of membranes [Recovered/Resolved]
  - Premature labour [Recovered/Resolved]
  - Premature delivery [Recovered/Resolved]
